FAERS Safety Report 7221150-0 (Version None)
Quarter: 2011Q1

REPORT INFORMATION
  Report Type: 
  Country: None (occurrence: None)
  Receive Date: 20110112
  Receipt Date: 20110105
  Transmission Date: 20110831
  Serious: Yes (Other)
  Sender: FDA-Public Use
  Company Number: US-PFIZER INC-2011004468

PATIENT

DRUGS (2)
  1. NARDIL [Suspect]
     Indication: ANXIETY
  2. NARDIL [Suspect]
     Indication: DEPRESSION
     Dosage: UNK
     Dates: start: 20101001

REACTIONS (3)
  - HYPERTENSION [None]
  - DRUG INEFFECTIVE [None]
  - DYSGEUSIA [None]
